FAERS Safety Report 10925635 (Version 1)
Quarter: 2015Q1

REPORT INFORMATION
  Report Type: Spontaneous
  Country: US (occurrence: None)
  Receive Date: 20150316
  Receipt Date: 20150316
  Transmission Date: 20150721
  Serious: No
  Sender: FDA-Public Use
  Company Number: None

PATIENT

DRUGS (1)
  1. DRY EYE OMEGA BENEFITS PRN [Suspect]
     Active Substance: DIETARY SUPPLEMENT

REACTIONS (1)
  - Blood creatinine increased [None]
